FAERS Safety Report 6257832-7 (Version None)
Quarter: 2009Q3

REPORT INFORMATION
  Report Type: 
  Country: None (occurrence: None)
  Receive Date: 20090706
  Receipt Date: 20090630
  Transmission Date: 20100115
  Serious: Yes (Life-Threatening)
  Sender: FDA-Public Use
  Company Number: JP-ASTRAZENECA-2009SE02531

PATIENT
  Age: 84 Year
  Sex: Male

DRUGS (8)
  1. ZOLADEX [Suspect]
     Indication: PROSTATE CANCER
     Route: 058
     Dates: start: 20080701, end: 20090526
  2. CASODEX [Suspect]
     Indication: PROSTATE CANCER
     Route: 048
     Dates: start: 20080701, end: 20090608
  3. TERSIGAN [Concomitant]
     Indication: ASTHMA
     Dosage: DOSE UNKNOWN
     Route: 048
  4. OLMETEC [Concomitant]
     Indication: HYPERTENSION
     Route: 048
  5. NORVASC [Concomitant]
     Indication: HYPERTENSION
     Route: 048
  6. ASPIRIN [Concomitant]
     Indication: ARTERIOSCLEROSIS
     Route: 048
  7. TICLOPIDINE HCL [Concomitant]
     Indication: ARTERIOSCLEROSIS
     Route: 048
  8. MOHRUS TAPE [Concomitant]
     Dosage: TWO TIMES A DAY, DOSE UNKNOWN
     Route: 062

REACTIONS (1)
  - INTERSTITIAL LUNG DISEASE [None]
